FAERS Safety Report 8011022-6 (Version None)
Quarter: 2011Q4

REPORT INFORMATION
  Report Type: 
  Country: None (occurrence: None)
  Receive Date: 20111228
  Receipt Date: 20111215
  Transmission Date: 20120403
  Serious: No
  Sender: FDA-Public Use
  Company Number: JP-ELI_LILLY_AND_COMPANY-JP201109007317

PATIENT
  Age: 29 Year
  Sex: Male

DRUGS (3)
  1. CYMBALTA [Suspect]
     Indication: DEPRESSION
     Dosage: 20 MG, QD
     Dates: start: 20110811
  2. ALPRAZOLAM [Concomitant]
     Dosage: 0.4 MG, QD
  3. CYMBALTA [Suspect]
     Dosage: 40 MG, QD
     Dates: start: 20110901

REACTIONS (1)
  - BLOOD BILIRUBIN INCREASED [None]
